FAERS Safety Report 7768492-8 (Version None)
Quarter: 2011Q3

REPORT INFORMATION
  Report Type: 
  Country: None (occurrence: None)
  Receive Date: 20110922
  Receipt Date: 20110207
  Transmission Date: 20111222
  Serious: No
  Sender: FDA-Public Use
  Company Number: US-ASTRAZENECA-2011SE03155

PATIENT
  Age: 646 Month
  Sex: Female
  Weight: 63.5 kg

DRUGS (4)
  1. SEROQUEL [Suspect]
     Indication: INSOMNIA
     Route: 048
     Dates: start: 20100901, end: 20101201
  2. SEROQUEL [Suspect]
     Route: 048
     Dates: start: 20101201, end: 20110101
  3. ATIVAN [Concomitant]
  4. SEROQUEL [Suspect]
     Route: 048
     Dates: start: 20101201, end: 20101201

REACTIONS (8)
  - SEDATION [None]
  - INSOMNIA [None]
  - SOMNOLENCE [None]
  - DRUG INEFFECTIVE [None]
  - DRUG DOSE OMISSION [None]
  - INITIAL INSOMNIA [None]
  - PERSONALITY CHANGE [None]
  - WEIGHT INCREASED [None]
